FAERS Safety Report 4871524-8 (Version None)
Quarter: 2005Q4

REPORT INFORMATION
  Report Type: 
  Country: None (occurrence: None)
  Receive Date: 20051229
  Receipt Date: 20051215
  Transmission Date: 20060501
  Serious: Yes (Death)
  Sender: FDA-Public Use
  Company Number: SUSI-2005-00913

PATIENT
  Sex: Female

DRUGS (2)
  1. ADDERALL XR 30 [Suspect]
     Dosage: 30 MG, 1X/DAY;QD,
  2. ZOLOFT/01011401/ (SERTRALINE) [Concomitant]

REACTIONS (1)
  - PRESCRIBED OVERDOSE [None]
